FAERS Safety Report 11064611 (Version 1)
Quarter: 2015Q2

REPORT INFORMATION
  Report Type: Spontaneous
  Country: US (occurrence: US)
  Receive Date: 20150424
  Receipt Date: 20150424
  Transmission Date: 20150821
  Serious: Yes (Hospitalization, Other)
  Sender: FDA-Public Use
  Company Number: US-ELI_LILLY_AND_COMPANY-US201504004978

PATIENT
  Sex: Female

DRUGS (3)
  1. HUMALOG [Suspect]
     Active Substance: INSULIN LISPRO
     Indication: TYPE 1 DIABETES MELLITUS
     Dosage: UNK, PRN
     Route: 065
     Dates: start: 201304
  2. HUMALOG [Suspect]
     Active Substance: INSULIN LISPRO
     Indication: TYPE 1 DIABETES MELLITUS
     Dosage: UNK
     Route: 058
     Dates: start: 2010, end: 2013
  3. LANTUS [Concomitant]
     Active Substance: INSULIN GLARGINE
     Dosage: 18 U, EACH EVENING
     Route: 065

REACTIONS (5)
  - Incorrect dose administered [Unknown]
  - Hip fracture [Unknown]
  - Fall [Unknown]
  - Gait disturbance [Not Recovered/Not Resolved]
  - Balance disorder [Unknown]

NARRATIVE: CASE EVENT DATE: 201304
